FAERS Safety Report 5126560-3 (Version None)
Quarter: 2006Q4

REPORT INFORMATION
  Report Type: 
  Country: None (occurrence: None)
  Receive Date: 20061012
  Receipt Date: 20061012
  Transmission Date: 20070319
  Serious: No
  Sender: FDA-Public Use
  Company Number: None

PATIENT
  Sex: Female
  Weight: 29.9374 kg

DRUGS (2)
  1. ABILIFY [Suspect]
     Indication: MAJOR DEPRESSION
     Dosage: 7.5MG  QHS   PO
     Route: 048
     Dates: start: 20060921
  2. ABILIFY [Suspect]
     Indication: POST-TRAUMATIC STRESS DISORDER
     Dosage: 7.5MG  QHS   PO
     Route: 048
     Dates: start: 20060921

REACTIONS (2)
  - COGWHEEL RIGIDITY [None]
  - MUSCULOSKELETAL STIFFNESS [None]
